FAERS Safety Report 11519914 (Version 1)
Quarter: 2015Q3

REPORT INFORMATION
  Report Type: Spontaneous
  Country: US (occurrence: None)
  Receive Date: 20150917
  Receipt Date: 20150917
  Transmission Date: 20151125
  Serious: No
  Sender: FDA-Public Use
  Company Number: None

PATIENT
  Age: 72 Year
  Sex: Female
  Weight: 70.76 kg

DRUGS (8)
  1. VALIUM [Concomitant]
     Active Substance: DIAZEPAM
  2. SELENIUM [Concomitant]
     Active Substance: SELENIUM
  3. CIPRO [Concomitant]
     Active Substance: CIPROFLOXACIN HYDROCHLORIDE
  4. MULTIVITAMINS [Concomitant]
     Active Substance: VITAMINS
  5. ZINC [Concomitant]
     Active Substance: ZINC\ZINC CHLORIDE
  6. CIPROFLOXACIN 500MG TABLETS COBALT [Suspect]
     Active Substance: CIPROFLOXACIN
     Indication: URINARY TRACT INFECTION
     Dosage: 14 PILLS 2 DAILY
     Route: 048
     Dates: start: 20131210, end: 20131217
  7. PREDNISONE. [Concomitant]
     Active Substance: PREDNISONE
  8. MOBID [Concomitant]

REACTIONS (7)
  - Joint swelling [None]
  - Heart rate irregular [None]
  - Muscular weakness [None]
  - Tendon pain [None]
  - Paraesthesia [None]
  - Swelling [None]
  - Hypoaesthesia [None]

NARRATIVE: CASE EVENT DATE: 201501
